FAERS Safety Report 6441405-7 (Version None)
Quarter: 2009Q4

REPORT INFORMATION
  Report Type: 
  Country: None (occurrence: None)
  Receive Date: 20091116
  Receipt Date: 20091104
  Transmission Date: 20100525
  Serious: Yes (Other)
  Sender: FDA-Public Use
  Company Number: US-PFIZER INC-2009293877

PATIENT
  Sex: Male

DRUGS (1)
  1. AZITHROMYCIN [Suspect]

REACTIONS (5)
  - ARTHRALGIA [None]
  - HEPATIC ENZYME INCREASED [None]
  - INFLAMMATION [None]
  - MUSCULAR WEAKNESS [None]
  - TENDON DISORDER [None]
